FAERS Safety Report 8489781-8 (Version None)
Quarter: 2012Q3

REPORT INFORMATION
  Report Type: 
  Country: None (occurrence: None)
  Receive Date: 20120705
  Receipt Date: 20120626
  Transmission Date: 20120928
  Serious: Yes (Other)
  Sender: FDA-Public Use
  Company Number: US-ASTRAZENECA-2012SE42933

PATIENT
  Age: 43 Year
  Sex: Female

DRUGS (9)
  1. NEXIUM [Suspect]
     Route: 048
  2. TRAMADOL HYDROCHLORIDE [Concomitant]
  3. MIRALAX [Concomitant]
  4. MULTI-VITAMINS [Concomitant]
  5. FLEXERIL [Concomitant]
     Indication: MUSCLE RELAXANT THERAPY
  6. VICODIN [Concomitant]
  7. SEROQUEL XR [Suspect]
     Indication: BIPOLAR I DISORDER
     Route: 048
     Dates: start: 20020101
  8. CREAM [Concomitant]
     Indication: BACK PAIN
  9. ATIVAN [Concomitant]
     Indication: SLEEP DISORDER

REACTIONS (9)
  - POST PROCEDURAL COMPLICATION [None]
  - INSOMNIA [None]
  - WEIGHT INCREASED [None]
  - RENAL DISORDER [None]
  - IMPAIRED WORK ABILITY [None]
  - UTERINE POLYP [None]
  - INFECTION [None]
  - INFERTILITY FEMALE [None]
  - MUSCULOSKELETAL DISCOMFORT [None]
